FAERS Safety Report 4747254-X (Version None)
Quarter: 2005Q3

REPORT INFORMATION
  Report Type: 
  Country: None (occurrence: None)
  Receive Date: 20050816
  Receipt Date: 20050805
  Transmission Date: 20060218
  Serious: Yes (Hospitalization)
  Sender: FDA-Public Use
  Company Number: 216735

PATIENT
  Age: 50 Year
  Sex: Male

DRUGS (3)
  1. XOLAIR [Suspect]
     Indication: ASTHMA
     Dosage: Q4W
     Dates: start: 20050420, end: 20050601
  2. ORAL STEROIDS (STEROID NOS) [Concomitant]
  3. QVAR (BECLOMETHASONE DIPROPIONATE) [Concomitant]

REACTIONS (8)
  - ALLERGIC GRANULOMATOUS ANGIITIS [None]
  - HYPOAESTHESIA [None]
  - LEUKOCYTOCLASTIC VASCULITIS [None]
  - NEUROPATHY PERIPHERAL [None]
  - NORMOCHROMIC NORMOCYTIC ANAEMIA [None]
  - PARAESTHESIA [None]
  - RED BLOOD CELL SEDIMENTATION RATE INCREASED [None]
  - VASCULITIC RASH [None]
